FAERS Safety Report 4636771-9 (Version None)
Quarter: 2005Q2

REPORT INFORMATION
  Report Type: 
  Country: None (occurrence: None)
  Receive Date: 20050414
  Receipt Date: 20050401
  Transmission Date: 20051028
  Serious: Yes (Hospitalization)
  Sender: FDA-Public Use
  Company Number: 2005037812

PATIENT
  Age: 75 Year
  Sex: Male
  Weight: 94.3482 kg

DRUGS (8)
  1. NEURONTIN [Suspect]
     Indication: NEUROPATHY
     Dosage: 2400 MG (800 MG, 3 IN 1 D), ORAL
     Route: 048
     Dates: start: 20040601, end: 20041201
  2. LISINOPRIL [Concomitant]
  3. PAROXETINE HYDROCHLORIDE (PARAXOTINE HYDROCHLORIDE) [Concomitant]
  4. TRAZODONE HCL [Concomitant]
  5. DOCUSATE (DOCUSATE) [Concomitant]
  6. SIMVASTATIN [Concomitant]
  7. CITALOPRAM HYDROBROMIDE [Concomitant]
  8. TRAMADOL HCL [Concomitant]

REACTIONS (7)
  - COORDINATION ABNORMAL [None]
  - CYSTITIS [None]
  - DRUG INEFFECTIVE [None]
  - FEELING DRUNK [None]
  - MYOCLONUS [None]
  - NEUROPATHY [None]
  - NYSTAGMUS [None]
